FAERS Safety Report 5484238-0 (Version None)
Quarter: 2007Q4

REPORT INFORMATION
  Report Type: 
  Country: None (occurrence: None)
  Receive Date: 20071009
  Receipt Date: 20070924
  Transmission Date: 20080405
  Serious: Yes (Disabling)
  Sender: FDA-Public Use
  Company Number: S07-FRA-05316-01

PATIENT
  Age: 65 Year
  Sex: Female

DRUGS (1)
  1. ESCITALOPRAM [Suspect]

REACTIONS (4)
  - CONFUSIONAL STATE [None]
  - DEPERSONALISATION [None]
  - DISSOCIATION [None]
  - DISTURBANCE IN ATTENTION [None]
